FAERS Safety Report 22246648 (Version 6)
Quarter: 2023Q4

REPORT INFORMATION
  Report Type: Spontaneous
  Country: US (occurrence: US)
  Receive Date: 20230424
  Receipt Date: 20231128
  Transmission Date: 20240109
  Serious: No
  Sender: FDA-Public Use
  Company Number: US-PFIZER INC-PV202300069552

PATIENT
  Age: 78 Year
  Sex: Female

DRUGS (1)
  1. IBRANCE [Suspect]
     Active Substance: PALBOCICLIB
     Dosage: 125 MG, CYCLIC (DAILY X 21 DAYS AND 14 DAY OFF REST)
     Route: 048

REACTIONS (8)
  - Brain fog [Unknown]
  - Memory impairment [Unknown]
  - Hypersomnia [Unknown]
  - Fatigue [Unknown]
  - Nasopharyngitis [Unknown]
  - Influenza [Unknown]
  - Joint injury [Unknown]
  - Arthritis [Unknown]
